FAERS Safety Report 12738423 (Version 1)
Quarter: 2016Q3

REPORT INFORMATION
  Report Type: Spontaneous
  Country: US (occurrence: US)
  Receive Date: 20160912
  Receipt Date: 20160912
  Transmission Date: 20161109
  Serious: No
  Sender: FDA-Public Use
  Company Number: US-SA-2016SA134512

PATIENT
  Age: 58 Year
  Sex: Male

DRUGS (4)
  1. TOUJEO [Suspect]
     Active Substance: INSULIN GLARGINE
     Indication: DIABETES MELLITUS
     Dosage: PRESCRIBED 40 UNITS BID, HOWEVER HE USUALLY TAKES 40 UNITS QD
     Route: 065
     Dates: start: 20160212
  2. SOLOSTAR [Concomitant]
     Active Substance: DEVICE
     Indication: DIABETES MELLITUS
     Dates: start: 20160212
  3. MORPHINE [Concomitant]
     Active Substance: MORPHINE
     Indication: NERVE COMPRESSION
  4. OXYCONTIN [Concomitant]
     Active Substance: OXYCODONE HYDROCHLORIDE
     Indication: NERVE COMPRESSION

REACTIONS (4)
  - Memory impairment [Unknown]
  - Off label use [Unknown]
  - Visual acuity reduced [Unknown]
  - Inappropriate schedule of drug administration [Unknown]
